FAERS Safety Report 13351366 (Version 1)
Quarter: 2017Q1

REPORT INFORMATION
  Report Type: Spontaneous
  Country: US (occurrence: US)
  Receive Date: 20170320
  Receipt Date: 20170320
  Transmission Date: 20170429
  Serious: No
  Sender: FDA-Public Use
  Company Number: US-BAUSCH-BL-2016-013420

PATIENT
  Sex: Male
  Weight: 3.3 kg

DRUGS (1)
  1. MESTINON [Suspect]
     Active Substance: PYRIDOSTIGMINE BROMIDE
     Indication: MYASTHENIA GRAVIS
     Dosage: EVERY 4 HOURS FOR 2 DOSES

REACTIONS (2)
  - No adverse event [Unknown]
  - Incorrect route of drug administration [Unknown]
